FAERS Safety Report 23364383 (Version 1)
Quarter: 2024Q1

REPORT INFORMATION
  Report Type: Report from Study
  Country: US (occurrence: US)
  Receive Date: 20240104
  Receipt Date: 20240104
  Transmission Date: 20240409
  Serious: Yes (Other)
  Sender: FDA-Public Use
  Company Number: US-SANDOZ-NVSC2020US279596

PATIENT
  Sex: Female

DRUGS (1)
  1. GLATOPA [Suspect]
     Active Substance: GLATIRAMER ACETATE
     Indication: Multiple sclerosis
     Dosage: 40 MG, TIW
     Route: 065

REACTIONS (7)
  - Haemorrhage [Unknown]
  - Gait disturbance [Unknown]
  - Pain [Unknown]
  - Malaise [Unknown]
  - Wrong technique in device usage process [Unknown]
  - Incorrect dose administered [Unknown]
  - Device breakage [Unknown]

NARRATIVE: CASE EVENT DATE: 20230101
